FAERS Safety Report 20338505 (Version 1)
Quarter: 2022Q1

REPORT INFORMATION
  Report Type: Spontaneous
  Country: US (occurrence: None)
  Receive Date: 20220116
  Receipt Date: 20220116
  Transmission Date: 20220423
  Serious: No
  Sender: FDA-Public Use
  Company Number: 2022A009133

PATIENT
  Sex: Female

DRUGS (2)
  1. FASENRA [Suspect]
     Active Substance: BENRALIZUMAB
     Indication: Asthma
     Dosage: 30.0MG/ML UNKNOWN
     Route: 058
  2. FASENRA [Concomitant]
     Active Substance: BENRALIZUMAB
     Route: 058

REACTIONS (7)
  - Asthma [Unknown]
  - Anxiety [Unknown]
  - Cough [Unknown]
  - Respiration abnormal [Unknown]
  - Memory impairment [Unknown]
  - Allergy to animal [Unknown]
  - Product storage error [Unknown]
